FAERS Safety Report 17828757 (Version 1)
Quarter: 2020Q2

REPORT INFORMATION
  Report Type: Spontaneous
  Country: US (occurrence: US)
  Receive Date: 20200527
  Receipt Date: 20200527
  Transmission Date: 20200714
  Serious: Yes (Other)
  Sender: FDA-Public Use
  Company Number: None

PATIENT
  Age: 65 Year
  Sex: Female
  Weight: 96.4 kg

DRUGS (1)
  1. ANCEF [Suspect]
     Active Substance: CEFAZOLIN SODIUM
     Indication: SURGERY

REACTIONS (5)
  - Respiratory arrest [None]
  - Nausea [None]
  - Vomiting [None]
  - Tachycardia [None]
  - Hypotension [None]

NARRATIVE: CASE EVENT DATE: 20200514
